FAERS Safety Report 23971793 (Version 1)
Quarter: 2024Q2

REPORT INFORMATION
  Report Type: Spontaneous
  Country: AR (occurrence: AR)
  Receive Date: 20240613
  Receipt Date: 20240613
  Transmission Date: 20240716
  Serious: No
  Sender: FDA-Public Use
  Company Number: AR-PFIZER INC-202400188234

PATIENT
  Age: 11 Year
  Sex: Female

DRUGS (1)
  1. GENOTROPIN [Suspect]
     Active Substance: SOMATROPIN
     Dosage: 1.6 MG (6 TIMES A WEEK)
     Dates: start: 20220317

REACTIONS (1)
  - Device information output issue [Not Recovered/Not Resolved]

NARRATIVE: CASE EVENT DATE: 20240605
